FAERS Safety Report 6985904-8 (Version None)
Quarter: 2010Q3

REPORT INFORMATION
  Report Type: 
  Country: None (occurrence: None)
  Receive Date: 20100827
  Receipt Date: 20100716
  Transmission Date: 20110219
  Serious: No
  Sender: FDA-Public Use
  Company Number: 015669

PATIENT
  Sex: Male

DRUGS (2)
  1. LACOSAMIDE [Suspect]
     Dosage: UNKNOWN DOSE AND FREQUENCY
  2. DEPAKOTE [Suspect]
     Dosage: 1200 MG DOSE INCREASED

REACTIONS (1)
  - HALLUCINATION [None]
